FAERS Safety Report 21281988 (Version 1)
Quarter: 2022Q3

REPORT INFORMATION
  Report Type: Spontaneous
  Country: US (occurrence: US)
  Receive Date: 20220901
  Receipt Date: 20220901
  Transmission Date: 20221027
  Serious: Yes (Other)
  Sender: FDA-Public Use
  Company Number: US-ABBVIE-22K-163-4485988-00

PATIENT

DRUGS (1)
  1. HUMIRA [Suspect]
     Active Substance: ADALIMUMAB
     Indication: Psoriasis
     Route: 058

REACTIONS (5)
  - Cerebral haemorrhage [Recovering/Resolving]
  - Cerebrovascular accident [Recovering/Resolving]
  - Memory impairment [Unknown]
  - Joint range of motion decreased [Unknown]
  - Speech disorder [Unknown]
